FAERS Safety Report 10588485 (Version 4)
Quarter: 2015Q3

REPORT INFORMATION
  Report Type: Spontaneous
  Country: CA (occurrence: CA)
  Receive Date: 20141117
  Receipt Date: 20150804
  Transmission Date: 20151125
  Serious: Yes (Hospitalization, Other)
  Sender: FDA-Public Use
  Company Number: CA-GSKJP-DK201209881002

PATIENT
  Age: 75 Year
  Sex: Female
  Weight: 102 kg

DRUGS (30)
  1. ADVAIR DISKUS [Suspect]
     Active Substance: FLUTICASONE PROPIONATE\SALMETEROL XINAFOATE
     Indication: ASTHMA
     Dosage: 1 DF, BID (500)
     Dates: start: 1999
  2. DOMPERIDONE [Concomitant]
     Active Substance: DOMPERIDONE
     Indication: PRODUCT USED FOR UNKNOWN INDICATION
     Route: 065
  3. ISOPTIN SR [Concomitant]
     Active Substance: VERAPAMIL HYDROCHLORIDE
     Indication: PRODUCT USED FOR UNKNOWN INDICATION
  4. PSORIASIS MEDICATION (UNKNOWN) [Concomitant]
     Indication: PRODUCT USED FOR UNKNOWN INDICATION
  5. VENTOLIN [Suspect]
     Active Substance: ALBUTEROL SULFATE
     Indication: PRODUCT USED FOR UNKNOWN INDICATION
     Route: 065
  6. PREDNISONE. [Suspect]
     Active Substance: PREDNISONE
     Indication: PRODUCT USED FOR UNKNOWN INDICATION
     Route: 065
  7. IRON [Concomitant]
     Active Substance: IRON
     Indication: PRODUCT USED FOR UNKNOWN INDICATION
     Route: 065
  8. VERAPAMIL [Concomitant]
     Active Substance: VERAPAMIL HYDROCHLORIDE
     Indication: PRODUCT USED FOR UNKNOWN INDICATION
     Route: 065
  9. SINGULAIR [Concomitant]
     Active Substance: MONTELUKAST SODIUM
     Indication: PRODUCT USED FOR UNKNOWN INDICATION
     Route: 065
  10. CALCIUM [Concomitant]
     Active Substance: CALCIUM
     Indication: PRODUCT USED FOR UNKNOWN INDICATION
  11. TYLENOL [Concomitant]
     Active Substance: ACETAMINOPHEN
     Indication: PRODUCT USED FOR UNKNOWN INDICATION
     Route: 065
  12. ESOMEPRAZOLE [Concomitant]
     Active Substance: ESOMEPRAZOLE
     Indication: PRODUCT USED FOR UNKNOWN INDICATION
     Route: 065
  13. WARFARIN [Concomitant]
     Active Substance: WARFARIN
     Indication: PRODUCT USED FOR UNKNOWN INDICATION
     Route: 065
  14. AVAMYS [Concomitant]
     Active Substance: FLUTICASONE FUROATE
     Indication: PRODUCT USED FOR UNKNOWN INDICATION
  15. VENLAFAXINE XR [Concomitant]
     Active Substance: VENLAFAXINE HYDROCHLORIDE
     Indication: PRODUCT USED FOR UNKNOWN INDICATION
  16. VERAPAMIL [Concomitant]
     Active Substance: VERAPAMIL HYDROCHLORIDE
     Indication: PRODUCT USED FOR UNKNOWN INDICATION
  17. LECTOPAM [Suspect]
     Active Substance: BROMAZEPAM
     Indication: PRODUCT USED FOR UNKNOWN INDICATION
     Dosage: 4.5 MG, QD
     Route: 065
  18. ADVAIR DISKUS [Suspect]
     Active Substance: FLUTICASONE PROPIONATE\SALMETEROL XINAFOATE
     Indication: CHRONIC OBSTRUCTIVE PULMONARY DISEASE
  19. VITAMIN D [Concomitant]
     Active Substance: CHOLECALCIFEROL
     Indication: PRODUCT USED FOR UNKNOWN INDICATION
  20. ZYLOPRIM [Concomitant]
     Active Substance: ALLOPURINOL
     Indication: PRODUCT USED FOR UNKNOWN INDICATION
     Route: 065
  21. VITAMIN B [Concomitant]
     Active Substance: VITAMIN B
     Indication: PRODUCT USED FOR UNKNOWN INDICATION
     Route: 065
  22. COUMADIN [Concomitant]
     Active Substance: WARFARIN SODIUM
     Indication: PRODUCT USED FOR UNKNOWN INDICATION
  23. AMIODARONE [Concomitant]
     Active Substance: AMIODARONE
     Indication: PRODUCT USED FOR UNKNOWN INDICATION
  24. QVAR [Concomitant]
     Active Substance: BECLOMETHASONE DIPROPIONATE
     Indication: BRONCHITIS CHRONIC
     Route: 065
  25. VENLAFAXINE [Concomitant]
     Active Substance: VENLAFAXINE HYDROCHLORIDE
     Indication: PRODUCT USED FOR UNKNOWN INDICATION
     Route: 065
  26. DOCUSATE [Concomitant]
     Active Substance: DOCUSATE
     Indication: PRODUCT USED FOR UNKNOWN INDICATION
     Route: 065
  27. GRAVOL [Concomitant]
     Active Substance: DIMENHYDRINATE
     Indication: PRODUCT USED FOR UNKNOWN INDICATION
  28. GASTROLYTE [Concomitant]
     Active Substance: DEXTROSE\ELECTROLYTES NOS
     Indication: PRODUCT USED FOR UNKNOWN INDICATION
  29. CALCIUM WITH VITAMIN D [Concomitant]
     Active Substance: CALCIUM\VITAMIN D
     Indication: PRODUCT USED FOR UNKNOWN INDICATION
  30. NEXIUM [Concomitant]
     Active Substance: ESOMEPRAZOLE MAGNESIUM
     Indication: PRODUCT USED FOR UNKNOWN INDICATION

REACTIONS (58)
  - Mass excision [Unknown]
  - Walking aid user [Unknown]
  - Mass [Unknown]
  - Epistaxis [Unknown]
  - Bronchitis [Unknown]
  - Anxiety [Unknown]
  - Aphonia [Unknown]
  - Drug level decreased [Unknown]
  - Dyspnoea exertional [Unknown]
  - Productive cough [Unknown]
  - Psoriasis [Unknown]
  - Amnesia [Unknown]
  - Local swelling [Not Recovered/Not Resolved]
  - Contusion [Recovered/Resolved]
  - Palpitations [Unknown]
  - Stress [Unknown]
  - Drug ineffective [Unknown]
  - Injury [Recovered/Resolved]
  - Cardiac disorder [Unknown]
  - Dacryostenosis acquired [Unknown]
  - Oropharyngeal pain [Unknown]
  - Pyrexia [Unknown]
  - Pain [Unknown]
  - Ear pain [Unknown]
  - Adverse event [Unknown]
  - Fall [Recovered/Resolved]
  - Cough [Recovered/Resolved]
  - Pain in jaw [Unknown]
  - Dyspnoea [Unknown]
  - Asthenia [Unknown]
  - Throat irritation [Unknown]
  - Urinary tract infection [Unknown]
  - Optic neuritis [Unknown]
  - Dry mouth [Unknown]
  - Dry throat [Unknown]
  - Fatigue [Unknown]
  - Influenza [Unknown]
  - Asthma [Unknown]
  - Feeling abnormal [Unknown]
  - Malaise [Unknown]
  - Weight decreased [Unknown]
  - Arrhythmia supraventricular [Unknown]
  - Pharyngeal haemorrhage [Unknown]
  - Ventricular arrhythmia [Unknown]
  - Multiple sclerosis relapse [Unknown]
  - Salivary gland mass [Unknown]
  - Vomiting [Recovered/Resolved]
  - Muscular weakness [Unknown]
  - Tooth disorder [Unknown]
  - Eye pain [Unknown]
  - Balance disorder [Unknown]
  - Dyspepsia [Unknown]
  - Cardiac fibrillation [Unknown]
  - Surgery [Unknown]
  - Salivary gland neoplasm [Not Recovered/Not Resolved]
  - Arthritis [Unknown]
  - Plantar fasciitis [Unknown]
  - Head injury [Unknown]

NARRATIVE: CASE EVENT DATE: 20111208
